FAERS Safety Report 7037208-5 (Version None)
Quarter: 2010Q4

REPORT INFORMATION
  Report Type: 
  Country: None (occurrence: None)
  Receive Date: 20101011
  Receipt Date: 20101008
  Transmission Date: 20110411
  Serious: Yes (Death)
  Sender: FDA-Public Use
  Company Number: CO-ROCHE-709275

PATIENT
  Sex: Female

DRUGS (2)
  1. XELODA [Suspect]
     Indication: BREAST CANCER
     Dosage: FREQUENCY: QD
     Route: 048
     Dates: start: 20081118, end: 20100601
  2. OXYCONTIN [Concomitant]
     Indication: PAIN
     Dosage: FREQUENCY: PRN
     Route: 048

REACTIONS (2)
  - DISEASE PROGRESSION [None]
  - PALMAR-PLANTAR ERYTHRODYSAESTHESIA SYNDROME [None]
